FAERS Safety Report 21555862 (Version 2)
Quarter: 2022Q4

REPORT INFORMATION
  Report Type: Spontaneous
  Country: GR (occurrence: None)
  Receive Date: 20221104
  Receipt Date: 20221108
  Transmission Date: 20230113
  Serious: Yes (Other)
  Sender: FDA-Public Use
  Company Number: GR-ROCHE-3212838

PATIENT
  Sex: Male

DRUGS (15)
  1. RITUXIMAB [Suspect]
     Active Substance: RITUXIMAB
     Indication: B-cell lymphoma
     Dosage: 1ST SYSTEMIC TREATMENT
     Route: 041
     Dates: start: 20210104, end: 20210510
  2. RITUXIMAB [Suspect]
     Active Substance: RITUXIMAB
     Dosage: 2ND SYSTEMIC TREATMENT
     Route: 041
     Dates: start: 20211116, end: 20220615
  3. ETOPOSIDE PHOSPHATE [Suspect]
     Active Substance: ETOPOSIDE PHOSPHATE
     Indication: B-cell lymphoma
     Dosage: 1ST SYSTEMIC TREATMENT
     Route: 065
     Dates: start: 20210104, end: 20210510
  4. ETOPOSIDE PHOSPHATE [Suspect]
     Active Substance: ETOPOSIDE PHOSPHATE
     Dosage: 2ND SYSTEMIC TREATMENT
     Route: 065
     Dates: start: 20211116, end: 20220615
  5. PREDNISONE [Suspect]
     Active Substance: PREDNISONE
     Indication: B-cell lymphoma
     Dosage: 1ST SYSTEMIC TREATMENT
     Route: 065
     Dates: start: 20210104, end: 20210510
  6. ONCOVIN [Suspect]
     Active Substance: VINCRISTINE SULFATE
     Indication: B-cell lymphoma
     Dosage: 1ST SYSTEMIC TREATMENT
     Route: 065
     Dates: start: 20210104, end: 20210510
  7. CYCLOPHOSPHAMIDE [Suspect]
     Active Substance: CYCLOPHOSPHAMIDE
     Indication: B-cell lymphoma
     Dosage: 1ST SYSTEMIC TREATMENT
     Route: 065
     Dates: start: 20210104, end: 20210510
  8. DOXORUBICIN HYDROCHLORIDE [Suspect]
     Active Substance: DOXORUBICIN HYDROCHLORIDE
     Indication: B-cell lymphoma
     Dosage: 1ST SYSTEMIC TREATMENT
     Route: 065
     Dates: start: 20210104, end: 20210510
  9. METHYLPREDNISOLONE [Suspect]
     Active Substance: METHYLPREDNISOLONE
     Indication: B-cell lymphoma
     Dosage: 2ND SYSTEMIC TREATMENT
     Route: 065
     Dates: start: 20211116, end: 20220615
  10. METHYLPREDNISOLONE [Suspect]
     Active Substance: METHYLPREDNISOLONE
     Dosage: 4TH SYSTEMIC TREATMENT: HIGH DOSE
     Route: 065
     Dates: start: 20220920, end: 20221011
  11. CYTARABINE [Suspect]
     Active Substance: CYTARABINE
     Indication: B-cell lymphoma
     Dosage: 2ND SYSTEMIC TREATMENT
     Route: 065
     Dates: start: 20211116
  12. CISPLATIN [Suspect]
     Active Substance: CISPLATIN
     Indication: B-cell lymphoma
     Route: 065
     Dates: start: 20211116, end: 20220615
  13. CARMUSTINE [Suspect]
     Active Substance: CARMUSTINE
     Indication: B-cell lymphoma
     Dosage: 2ND SYSTEMIC TREATMENT
     Route: 065
     Dates: start: 20211116, end: 20220615
  14. MELPHALAN [Suspect]
     Active Substance: MELPHALAN
     Indication: B-cell lymphoma
     Dosage: 2ND SYSTEMIC TREATMENT
     Route: 065
     Dates: start: 20211116, end: 20220615
  15. PEMBROLIZUMAB [Suspect]
     Active Substance: PEMBROLIZUMAB
     Indication: B-cell lymphoma
     Dosage: 3RD SYSTEMIC TREATMENT
     Route: 065
     Dates: start: 20220913, end: 20220913

REACTIONS (1)
  - Disease progression [Unknown]

NARRATIVE: CASE EVENT DATE: 20220826
